FAERS Safety Report 7915333-1 (Version None)
Quarter: 2011Q4

REPORT INFORMATION
  Report Type: 
  Country: None (occurrence: None)
  Receive Date: 20111115
  Receipt Date: 20111107
  Transmission Date: 20120403
  Serious: Yes (Other)
  Sender: FDA-Public Use
  Company Number: PHHY2011BR098595

PATIENT
  Sex: Female

DRUGS (2)
  1. DIAMOX SRC [Suspect]
     Dosage: 0.5 DF, QD (HALF TABLET A DAY)
  2. SLOW-K [Suspect]
     Dosage: 2 DF, QD
     Route: 048
     Dates: end: 20111108

REACTIONS (5)
  - DYSGEUSIA [None]
  - SUICIDAL IDEATION [None]
  - DECREASED APPETITE [None]
  - SENSATION OF HEAVINESS [None]
  - FEELING ABNORMAL [None]
